FAERS Safety Report 20115951 (Version 4)
Quarter: 2025Q4

REPORT INFORMATION
  Report Type: Report from Study
  Country: US (occurrence: US)
  Receive Date: 20211126
  Receipt Date: 20251212
  Transmission Date: 20260118
  Serious: Yes (Other)
  Sender: ROCHE
  Company Number: US-ROCHE-2960267

PATIENT
  Sex: Female

DRUGS (16)
  1. CELLCEPT [Suspect]
     Active Substance: MYCOPHENOLATE MOFETIL
     Indication: Renal transplant
     Dosage: 3 BID
     Route: 048
  2. CELLCEPT [Suspect]
     Active Substance: MYCOPHENOLATE MOFETIL
     Dosage: 3 BID
     Route: 048
  3. CARVEDILOL [Concomitant]
     Active Substance: CARVEDILOL
  4. MAGNESIUM OXIDE [Concomitant]
     Active Substance: MAGNESIUM OXIDE
  5. BENZONATATE [Concomitant]
     Active Substance: BENZONATATE
  6. TACROLIMUS [Concomitant]
     Active Substance: TACROLIMUS
  7. PREDNISONE [Concomitant]
     Active Substance: PREDNISONE
  8. SULFAMETHOXAZOLE\TRIMETHOPRIM [Concomitant]
     Active Substance: SULFAMETHOXAZOLE\TRIMETHOPRIM
     Dosage: 400-80 MG
  9. LATANOPROST [Concomitant]
     Active Substance: LATANOPROST
  10. ALBUTEROL SULFATE [Concomitant]
     Active Substance: ALBUTEROL SULFATE
     Dosage: 90MCG
  11. INSULIN GLARGINE [Concomitant]
     Active Substance: INSULIN GLARGINE
  12. DIAZEPAM [Concomitant]
     Active Substance: DIAZEPAM
  13. CHOLECALCIFEROL [Concomitant]
     Active Substance: CHOLECALCIFEROL
  14. CYCLOSPORINE [Concomitant]
     Active Substance: CYCLOSPORINE
  15. ATORVASTATIN [Concomitant]
     Active Substance: ATORVASTATIN
  16. CYANOCOBALAMIN [Concomitant]
     Active Substance: CYANOCOBALAMIN
     Dosage: 1000 MCG

REACTIONS (32)
  - Renal failure [Unknown]
  - Off label use [Unknown]
  - Neck pain [Unknown]
  - Neuropathy peripheral [Unknown]
  - Cardiac failure chronic [Unknown]
  - Cardiomyopathy [Unknown]
  - Hypercholesterolaemia [Unknown]
  - Hypertension [Unknown]
  - Pulmonary mass [Unknown]
  - Restrictive pulmonary disease [Unknown]
  - Obstructive sleep apnoea syndrome [Unknown]
  - Asthma [Unknown]
  - Dysphagia [Unknown]
  - Vitamin B12 deficiency [Unknown]
  - End stage renal disease [Unknown]
  - Steroid diabetes [Unknown]
  - Red blood cell sedimentation rate increased [Unknown]
  - Sjogren^s syndrome [Unknown]
  - Immunodeficiency [Unknown]
  - Myopia [Unknown]
  - Dry eye [Unknown]
  - Dry eye [Unknown]
  - Normal tension glaucoma [Unknown]
  - Vitreous detachment [Unknown]
  - Pseudophakia [Unknown]
  - Exophthalmos [Unknown]
  - Astigmatism [Unknown]
  - Diffuse idiopathic skeletal hyperostosis [Unknown]
  - Astigmatism [Unknown]
  - Presbyopia [Unknown]
  - Cataract [Unknown]
  - Haemorrhage [Unknown]
